FAERS Safety Report 17366226 (Version 5)
Quarter: 2021Q1

REPORT INFORMATION
  Report Type: Spontaneous
  Country: US (occurrence: US)
  Receive Date: 20200204
  Receipt Date: 20210316
  Transmission Date: 20210419
  Serious: Yes (Hospitalization)
  Sender: FDA-Public Use
  Company Number: US-PFIZER INC-2020044458

PATIENT
  Age: 83 Year
  Sex: Female
  Weight: 53.06 kg

DRUGS (1)
  1. DILTIAZEM HCL [Suspect]
     Active Substance: DILTIAZEM HYDROCHLORIDE
     Indication: ATRIAL FIBRILLATION
     Dosage: UNK

REACTIONS (5)
  - Drug hypersensitivity [Unknown]
  - Swelling [Unknown]
  - Joint swelling [Unknown]
  - Asthma [Unknown]
  - Erythema [Unknown]
